FAERS Safety Report 13971603 (Version 2)
Quarter: 2017Q3

REPORT INFORMATION
  Report Type: Spontaneous
  Country: GB (occurrence: BE)
  Receive Date: 20170914
  Receipt Date: 20170920
  Transmission Date: 20171128
  Serious: Yes (Life-Threatening, Hospitalization, Other)
  Sender: FDA-Public Use
  Company Number: BE-SA-2017SA167013

PATIENT
  Age: 49 Year
  Sex: Female

DRUGS (10)
  1. OXALIPLATIN. [Suspect]
     Active Substance: OXALIPLATIN
     Indication: RECTOSIGMOID CANCER
     Route: 065
  2. FLUOROURACIL. [Suspect]
     Active Substance: FLUOROURACIL
     Indication: RECTOSIGMOID CANCER
     Route: 065
  3. METHYLPREDNISOLONE. [Suspect]
     Active Substance: METHYLPREDNISOLONE
     Indication: INTERSTITIAL LUNG DISEASE
     Dosage: TAPERED DOSE
     Route: 065
  4. METHYLPREDNISOLONE. [Suspect]
     Active Substance: METHYLPREDNISOLONE
     Indication: INTERSTITIAL LUNG DISEASE
     Route: 042
  5. FOLINIC ACID [Suspect]
     Active Substance: LEUCOVORIN
     Indication: RECTOSIGMOID CANCER
     Route: 065
  6. FLUOROURACIL. [Suspect]
     Active Substance: FLUOROURACIL
     Indication: RECTOSIGMOID CANCER
     Route: 065
  7. FOLINIC ACID [Suspect]
     Active Substance: LEUCOVORIN
     Indication: RECTOSIGMOID CANCER
     Route: 065
  8. OXALIPLATIN. [Suspect]
     Active Substance: OXALIPLATIN
     Indication: RECTOSIGMOID CANCER
     Route: 065
  9. METHYLPREDNISOLONE. [Suspect]
     Active Substance: METHYLPREDNISOLONE
     Indication: INTERSTITIAL LUNG DISEASE
     Route: 048
  10. ENDOXAN [Concomitant]
     Active Substance: CYCLOPHOSPHAMIDE
     Dosage: SINGLE DOSE

REACTIONS (12)
  - Pulmonary toxicity [Recovered/Resolved]
  - Intensive care unit acquired weakness [Unknown]
  - Pneumonitis [Recovered/Resolved]
  - Lymphocytic infiltration [Recovered/Resolved]
  - Dyspnoea [Recovered/Resolved]
  - Respiratory failure [Recovered/Resolved]
  - Pulmonary fibrosis [Recovered/Resolved]
  - Lung consolidation [Recovered/Resolved]
  - White blood cell count increased [Recovered/Resolved]
  - Pulmonary embolism [Unknown]
  - Interstitial lung disease [Recovered/Resolved]
  - Hypoxia [Recovered/Resolved]
